FAERS Safety Report 8292413-5 (Version None)
Quarter: 2012Q2

REPORT INFORMATION
  Report Type: 
  Country: None (occurrence: None)
  Receive Date: 20120417
  Receipt Date: 20120412
  Transmission Date: 20120825
  Serious: Yes (Hospitalization, Other)
  Sender: FDA-Public Use
  Company Number: JP-PFIZER INC-2012042630

PATIENT

DRUGS (4)
  1. ZOSYN [Interacting]
  2. PRODIF [Suspect]
     Indication: FUNGAL INFECTION
  3. MEROPENEM [Suspect]
  4. CLINDAMYCIN HCL [Suspect]

REACTIONS (3)
  - DRUG INTERACTION [None]
  - INTERSTITIAL LUNG DISEASE [None]
  - HEPATIC FUNCTION ABNORMAL [None]
